FAERS Safety Report 7366043-3 (Version None)
Quarter: 2011Q1

REPORT INFORMATION
  Report Type: 
  Country: None (occurrence: None)
  Receive Date: 20110322
  Receipt Date: 20110308
  Transmission Date: 20110831
  Serious: Yes (Hospitalization, Other)
  Sender: FDA-Public Use
  Company Number: US-JNJFOC-20060405992

PATIENT
  Sex: Male
  Weight: 33.4 kg

DRUGS (7)
  1. INFLIXIMAB [Suspect]
  2. INFLIXIMAB [Suspect]
     Dosage: 5 MG/KG:  TOTAL 11 DOSES
  3. MESALAMINE [Concomitant]
     Route: 048
  4. INFLIXIMAB [Suspect]
     Indication: CROHN'S DISEASE
  5. RIFAXIMIN [Concomitant]
  6. INFLIXIMAB [Suspect]
     Dosage: TOTAL 12 DOSES
  7. COUMADIN [Concomitant]

REACTIONS (3)
  - ILEAL PERFORATION [None]
  - CROHN'S DISEASE [None]
  - FISTULA [None]
